FAERS Safety Report 7207122-0 (Version None)
Quarter: 2011Q1

REPORT INFORMATION
  Report Type: 
  Country: None (occurrence: None)
  Receive Date: 20110103
  Receipt Date: 20101221
  Transmission Date: 20110831
  Serious: Yes (Other)
  Sender: FDA-Public Use
  Company Number: PHHY2010FR89354

PATIENT
  Sex: Male

DRUGS (2)
  1. GLEEVEC [Suspect]
     Dosage: 400 MG, UNK
     Dates: start: 20070116
  2. GLEEVEC [Suspect]
     Indication: CHRONIC MYELOID LEUKAEMIA
     Dosage: UNK
     Dates: start: 20010926, end: 20050520

REACTIONS (5)
  - PROSTATIC SPECIFIC ANTIGEN INCREASED [None]
  - TUBERCULOSIS [None]
  - GENE MUTATION IDENTIFICATION TEST POSITIVE [None]
  - PROSTATE CANCER STAGE I [None]
  - NEOPLASM MALIGNANT [None]
